FAERS Safety Report 9097076 (Version 1)
Quarter: 2013Q1

REPORT INFORMATION
  Report Type: Spontaneous
  Country: GB (occurrence: None)
  Receive Date: 20130123
  Receipt Date: 20130123
  Transmission Date: 20140127
  Serious: Yes (Hospitalization)
  Sender: FDA-Public Use
  Company Number: 1556522

PATIENT
  Age: 60 Year
  Sex: Female

DRUGS (4)
  1. (OXALIPLATIN) [Suspect]
     Indication: CHEMOTHERAPY
     Dosage: 85 MG/M 2 MILLIGRAM9S) /SQ. METER
     Route: 042
     Dates: start: 20080515, end: 20081002
  2. (IRINOTECAN) [Concomitant]
  3. (FLUOROURACIL) [Concomitant]
  4. (FOLINIC ACID) [Concomitant]

REACTIONS (9)
  - Feeling hot [None]
  - Chills [None]
  - Pyrexia [None]
  - Lower respiratory tract infection [None]
  - Lethargy [None]
  - Diarrhoea [None]
  - Neuropathy peripheral [None]
  - Mucosal inflammation [None]
  - Nausea [None]
